FAERS Safety Report 11157950 (Version 1)
Quarter: 2015Q2

REPORT INFORMATION
  Report Type: Spontaneous
  Country: DE (occurrence: DE)
  Receive Date: 20150603
  Receipt Date: 20150603
  Transmission Date: 20150821
  Serious: Yes (Other)
  Sender: FDA-Public Use
  Company Number: DE-JNJFOC-20140412420

PATIENT

DRUGS (1)
  1. ITRACONAZOLE. [Suspect]
     Active Substance: ITRACONAZOLE
     Indication: ANTIFUNGAL PROPHYLAXIS
     Dosage: MEAN OF 12.6   6.1 DAYS??2X5 MG KG BW-1 D-1 (MAXIMUM 2X200 MG/DAY)
     Route: 048
     Dates: start: 2006, end: 2012

REACTIONS (13)
  - Abdominal pain [Unknown]
  - Aspergillus infection [Unknown]
  - Bronchopulmonary aspergillosis [Unknown]
  - Rash [Unknown]
  - Pyrexia [Unknown]
  - Nausea [Unknown]
  - Treatment failure [Unknown]
  - Alanine aminotransferase increased [Unknown]
  - Blood bilirubin increased [Unknown]
  - Diarrhoea [Unknown]
  - Blood potassium decreased [Unknown]
  - Bilirubin conjugated increased [Unknown]
  - Aspartate aminotransferase increased [Unknown]
